FAERS Safety Report 16707204 (Version 2)
Quarter: 2019Q3

REPORT INFORMATION
  Report Type: Spontaneous
  Country: IN (occurrence: IN)
  Receive Date: 20190815
  Receipt Date: 20190927
  Transmission Date: 20191004
  Serious: No
  Sender: FDA-Public Use
  Company Number: IN-PFIZER INC-2019348100

PATIENT
  Age: 69 Year
  Sex: Female

DRUGS (2)
  1. ZOLEDRONIC ACID [Concomitant]
     Active Substance: ZOLEDRONIC ACID
     Dosage: UNK
  2. PALBACE [Suspect]
     Active Substance: PALBOCICLIB
     Indication: BREAST CANCER METASTATIC
     Dosage: 100 MG, 1X/DAY
     Route: 048
     Dates: start: 20170905

REACTIONS (1)
  - No adverse event [Unknown]
